FAERS Safety Report 4285293-6 (Version None)
Quarter: 2004Q1

REPORT INFORMATION
  Report Type: 
  Country: None (occurrence: None)
  Receive Date: 20040204
  Receipt Date: 20030731
  Transmission Date: 20041129
  Serious: Yes (Hospitalization)
  Sender: FDA-Public Use
  Company Number: PHEH2003US06814

PATIENT
  Age: 89 Year
  Sex: Female
  Weight: 72 kg

DRUGS (3)
  1. AMITRIPTYLINE [Concomitant]
     Dosage: 20 MG, DU
     Route: 048
  2. ASPIRIN [Concomitant]
     Dosage: 325 MG, QD
  3. MIACALCIN [Suspect]
     Indication: OSTEOPOROSIS
     Dosage: 1 SPRAY ALTERNATING NOSTRILS QD
     Route: 045
     Dates: start: 20030204, end: 20030225

REACTIONS (11)
  - ABNORMAL SENSATION IN EYE [None]
  - ANKLE FRACTURE [None]
  - ARTHRALGIA [None]
  - BACK PAIN [None]
  - CALCINOSIS [None]
  - DIFFICULTY IN WALKING [None]
  - EYE DISCHARGE [None]
  - OSTEOARTHRITIS [None]
  - PAIN IN JAW [None]
  - VISUAL ACUITY REDUCED [None]
  - WALKING AID USER [None]
